FAERS Safety Report 13147482 (Version 2)
Quarter: 2017Q1

REPORT INFORMATION
  Report Type: Spontaneous
  Country: US (occurrence: US)
  Receive Date: 20170125
  Receipt Date: 20170131
  Transmission Date: 20170428
  Serious: Yes (Death)
  Sender: FDA-Public Use
  Company Number: US-UNITED THERAPEUTICS-UNT-2017-000792

PATIENT
  Age: 77 Year
  Sex: Male
  Weight: 66.21 kg

DRUGS (1)
  1. REMODULIN [Suspect]
     Active Substance: TREPROSTINIL
     Indication: PULMONARY HYPERTENSION
     Dosage: 0.0405 ?G/KG, CONTINUING
     Route: 058
     Dates: start: 20161229

REACTIONS (1)
  - Death [Fatal]

NARRATIVE: CASE EVENT DATE: 20170113
